FAERS Safety Report 7668223-6 (Version None)
Quarter: 2011Q3

REPORT INFORMATION
  Report Type: 
  Country: None (occurrence: None)
  Receive Date: 20110808
  Receipt Date: 20101209
  Transmission Date: 20111222
  Serious: No
  Sender: FDA-Public Use
  Company Number: US-BAYER-2010-007293

PATIENT
  Age: 35 Year
  Sex: Female
  Weight: 63.492 kg

DRUGS (2)
  1. BARIUM SULFATE [Concomitant]
     Indication: COMPUTERISED TOMOGRAM ABDOMEN
     Dosage: UNK
     Dates: start: 20101210, end: 20101210
  2. ULTRAVIST 150 [Suspect]
     Indication: COMPUTERISED TOMOGRAM ABDOMEN
     Dosage: 95 ML, UNK
     Route: 042
     Dates: start: 20101210, end: 20101210

REACTIONS (2)
  - URTICARIA [None]
  - PRURITUS [None]
